FAERS Safety Report 10235201 (Version 2)
Quarter: 2014Q2

REPORT INFORMATION
  Report Type: Spontaneous
  Country: US (occurrence: None)
  Receive Date: 20140611
  Receipt Date: 20140625
  Transmission Date: 20141212
  Serious: Yes (Hospitalization)
  Sender: FDA-Public Use
  Company Number: FK201402243

PATIENT
  Age: 50 Year
  Sex: Male
  Weight: 121 kg

DRUGS (4)
  1. FLUOROURACIL [Suspect]
     Indication: ADENOCARCINOMA OF COLON
     Route: 040
     Dates: start: 20140108, end: 20140205
  2. ELOXATIN [Suspect]
     Indication: ADENOCARCINOMA OF COLON
     Dosage: (NOT OTHERWISE SPECIFIED)
     Route: 042
     Dates: start: 20140108, end: 20140205
  3. CELECOXIB/PLACEBO [Suspect]
     Indication: ADENOCARCINOMA OF COLON
     Route: 048
     Dates: start: 20140108, end: 20140217
  4. LEUCOVORIN (CALCIUM FOLINATE) [Concomitant]

REACTIONS (2)
  - Embolism [None]
  - Deep vein thrombosis [None]
